FAERS Safety Report 24019622 (Version 1)
Quarter: 2024Q2

REPORT INFORMATION
  Report Type: Spontaneous
  Country: ES (occurrence: ES)
  Receive Date: 20240627
  Receipt Date: 20240627
  Transmission Date: 20240716
  Serious: Yes (Life-Threatening)
  Sender: FDA-Public Use
  Company Number: None

PATIENT
  Age: 59 Year
  Sex: Female
  Weight: 75 kg

DRUGS (7)
  1. COPAXONE [Suspect]
     Active Substance: GLATIRAMER ACETATE
     Indication: Hypersensitivity
     Dosage: IT IS ADMINISTERED BY PRE-FILLED SYRINGE, 12 PRE-FILLED SYRINGES OF 1 ML
     Route: 058
     Dates: start: 20220420, end: 20240514
  2. LAMICTAL [Concomitant]
     Active Substance: LAMOTRIGINE
     Indication: Bipolar disorder
     Dosage: 0-0-1, 100 MG  56 TABLETS
     Route: 065
     Dates: start: 2005
  3. QUETIAPINE [Concomitant]
     Active Substance: QUETIAPINE
     Indication: Bipolar disorder
     Dosage: 0-0-1, QUETIAPINE KERN PHARMA EFG 60 TABLETS
     Route: 065
     Dates: start: 20050502
  4. ALPRAZOLAM [Concomitant]
     Active Substance: ALPRAZOLAM
     Indication: Bipolar disorder
     Dosage: 1-0-0, TRANKIMAZIN RETARD  30 TABLETS
     Route: 065
     Dates: start: 20050502
  5. OMEPRAZOLE [Concomitant]
     Active Substance: DONEPEZIL HYDROCHLORIDE\OMEPRAZOLE\OMEPRAZOLE MAGNESIUM
     Indication: Bipolar disorder
     Dosage: 1-0-0,OMEPRAZOLE KERN PHARMA   EFG, 56 CAPSULES,
     Route: 065
     Dates: start: 2005
  6. PRISTIQ EXTENDED-RELEASE [Concomitant]
     Active Substance: DESVENLAFAXINE SUCCINATE
     Indication: Bipolar disorder
     Dosage: 1.5-0-0-,  28 TABLETS
     Route: 065
     Dates: start: 20050502
  7. SEROQUEL [Concomitant]
     Active Substance: QUETIAPINE FUMARATE
     Indication: Bipolar disorder
     Dosage: 2-0-2,PROLONG , 60 TABLETS
     Route: 065
     Dates: start: 20050502

REACTIONS (4)
  - Dyspnoea [Recovered/Resolved]
  - Generalised oedema [Recovered/Resolved]
  - Pruritus [Recovered/Resolved]
  - Dysphagia [Recovered/Resolved]

NARRATIVE: CASE EVENT DATE: 20240514
